FAERS Safety Report 10007693 (Version 1)
Quarter: 2014Q1

REPORT INFORMATION
  Report Type: Spontaneous
  Country: US (occurrence: US)
  Receive Date: 20140313
  Receipt Date: 20140313
  Transmission Date: 20141002
  Serious: Yes (Other)
  Sender: FDA-Public Use
  Company Number: US-GILEAD-2012-0066576

PATIENT
  Age: 44 Year
  Sex: Female

DRUGS (3)
  1. LETAIRIS [Suspect]
     Indication: PULMONARY ARTERIAL HYPERTENSION
     Dosage: 5 MG, QD
     Route: 048
     Dates: start: 20110727
  2. TYVASO [Concomitant]
  3. REVATIO [Concomitant]

REACTIONS (3)
  - Hypersensitivity [Unknown]
  - Swollen tongue [Unknown]
  - Throat tightness [Unknown]
